FAERS Safety Report 8987346 (Version 1)
Quarter: 2012Q4

REPORT INFORMATION
  Report Type: 
  Country: ES (occurrence: ES)
  Receive Date: 20121226
  Receipt Date: 20121226
  Transmission Date: 20130627
  Serious: Yes (Other)
  Sender: FDA-Public Use
  Company Number: ES-VERTEX PHARMACEUTICALS INC.-2012-026595

PATIENT
  Age: 53 Year
  Sex: Male

DRUGS (3)
  1. INCIVO [Suspect]
     Indication: HEPATITIS C
     Dosage: Dosage Form: Tablet
     Route: 048
     Dates: start: 20120525, end: 20120611
  2. REBETOL [Interacting]
     Indication: HEPATITIS C
     Route: 048
     Dates: start: 20120427, end: 20120611
  3. PEGASYS [Interacting]
     Indication: HEPATITIS C
     Dosage: 180 mg, qw
     Route: 058
     Dates: start: 20120427, end: 20120609

REACTIONS (4)
  - Drug interaction [Recovered/Resolved]
  - Diarrhoea [Recovered/Resolved]
  - Anal pruritus [Recovered/Resolved]
  - Proctalgia [Recovered/Resolved]
